FAERS Safety Report 7433198-1 (Version None)
Quarter: 2011Q2

REPORT INFORMATION
  Report Type: 
  Country: None (occurrence: None)
  Receive Date: 20110422
  Receipt Date: 20110415
  Transmission Date: 20111010
  Serious: No
  Sender: FDA-Public Use
  Company Number: US-B.I. PHARMACEUTICALS,INC./RIDGEFIELD-2011-BP-00135BP

PATIENT
  Sex: Male
  Weight: 68.49 kg

DRUGS (8)
  1. PRADAXA [Suspect]
     Indication: ANTICOAGULANT THERAPY
  2. DIGOXIN [Concomitant]
     Dosage: 0.125 MG
  3. LISINOPRIL [Concomitant]
     Dosage: 2.5 MG
  4. COREG [Concomitant]
     Dosage: 25 MG
  5. ALDACTONE [Concomitant]
     Dosage: 12.5 MG
  6. PRADAXA [Suspect]
     Indication: ATRIAL FIBRILLATION
     Dosage: 300 MG
     Route: 048
     Dates: end: 20110121
  7. LIPITOR [Concomitant]
     Dosage: 40 MG
  8. RANITIDINE [Concomitant]
     Dosage: 300 MG

REACTIONS (2)
  - SENSATION OF FOREIGN BODY [None]
  - ABDOMINAL DISCOMFORT [None]
